FAERS Safety Report 8596443 (Version 6)
Quarter: 2013Q3

REPORT INFORMATION
  Report Type: Report from Study
  Country: DE (occurrence: DE)
  Receive Date: 20120605
  Receipt Date: 20130906
  Transmission Date: 20140515
  Serious: Yes (Hospitalization)
  Sender: FDA-Public Use
  Company Number: DE-UCBSA-058115

PATIENT
  Sex: Female
  Weight: 75 kg

DRUGS (12)
  1. CERTOLIZUMAB PEGOL [Suspect]
     Route: 058
     Dates: start: 201102, end: 2011
  2. OMEPRAZOLE [Concomitant]
     Indication: GASTRITIS
     Route: 048
     Dates: start: 2009
  3. OMEPRAZOLE [Concomitant]
     Indication: PROPHYLAXIS
     Route: 048
     Dates: start: 2009
  4. OMEPRAZOLE [Concomitant]
     Indication: GASTRITIS
     Route: 048
  5. OMEPRAZOLE [Concomitant]
     Indication: PROPHYLAXIS
     Route: 048
  6. PREDNISOLON [Concomitant]
     Indication: RHEUMATIC DISORDER
  7. DECORTIN [Concomitant]
     Indication: RHEUMATOID ARTHRITIS
     Route: 048
     Dates: start: 2009
  8. DICLOFENAC [Concomitant]
     Indication: PAIN
  9. SIMVAHEXAL [Concomitant]
     Indication: HYPERLIPIDAEMIA
     Route: 048
     Dates: start: 2006
  10. BENALAPRIL [Concomitant]
     Route: 048
     Dates: start: 2009
  11. SIMVASTATIN [Concomitant]
     Indication: HYPERLIPIDAEMIA
  12. ENABETA [Concomitant]
     Indication: HYPERTENSION

REACTIONS (1)
  - Pneumonia [Recovered/Resolved]
